FAERS Safety Report 16371960 (Version 1)
Quarter: 2019Q2

REPORT INFORMATION
  Report Type: Spontaneous
  Country: US (occurrence: US)
  Receive Date: 20190424
  Receipt Date: 20190424
  Transmission Date: 20190711
  Serious: Yes (Death)
  Sender: FDA-Public Use
  Company Number: None

PATIENT
  Age: 72 Year
  Sex: Female
  Weight: 81.5 kg

DRUGS (7)
  1. REGORAFENIB 160MG DAILY [Suspect]
     Active Substance: REGORAFENIB
     Indication: COLORECTAL CANCER METASTATIC
     Route: 048
     Dates: start: 20160830, end: 20160906
  2. LORAZEPAM 0.5MG [Concomitant]
     Active Substance: LORAZEPAM
  3. EMLA TOPICAL CREAM [Concomitant]
  4. CLINDAMYCIN PHOSPATE TOPICAL [Concomitant]
  5. METFORMIN 500MG [Concomitant]
     Active Substance: METFORMIN HYDROCHLORIDE
  6. ONDANSETRON 8MG [Concomitant]
     Active Substance: ONDANSETRON
  7. SUMVASTATIN 40MG [Concomitant]

REACTIONS (2)
  - Malignant neoplasm progression [None]
  - Colon cancer metastatic [None]

NARRATIVE: CASE EVENT DATE: 20161001
